FAERS Safety Report 11587598 (Version 3)
Quarter: 2015Q4

REPORT INFORMATION
  Report Type: Spontaneous
  Country: US (occurrence: US)
  Receive Date: 20151001
  Receipt Date: 20151117
  Transmission Date: 20160304
  Serious: Yes (Other)
  Sender: FDA-Public Use
  Company Number: US-ASTRAZENECA-2015SE92294

PATIENT
  Age: 28773 Day
  Sex: Female
  Weight: 71 kg

DRUGS (32)
  1. LYRICA [Suspect]
     Active Substance: PREGABALIN
     Route: 048
     Dates: start: 20150810, end: 20150810
  2. ESTRING [Concomitant]
     Active Substance: ESTRADIOL
     Dosage: EVERY 90 DAYS
     Route: 067
  3. ACETAMINOPHEN. [Concomitant]
     Active Substance: ACETAMINOPHEN
     Indication: PAIN
     Dosage: 4 TIMES DAILY AS REQUIRED
     Route: 048
  4. RESTASIS [Concomitant]
     Active Substance: CYCLOSPORINE
     Route: 055
     Dates: start: 20131213
  5. MORPHINE [Concomitant]
     Active Substance: MORPHINE
     Route: 048
  6. PYRIDIUM [Concomitant]
     Active Substance: PHENAZOPYRIDINE
     Indication: DYSURIA
  7. ALPRAZOLAM. [Concomitant]
     Active Substance: ALPRAZOLAM
     Indication: ANXIETY
     Dosage: 0.5 MG TAKE TABLET THREE TIMES EVERY DAY AS NEEDED
     Route: 048
     Dates: start: 20150928
  8. HYDROCODONE [Concomitant]
     Active Substance: HYDROCODONE
     Indication: PAIN
     Dosage: 1-2 TABLET 4 TIMES DAILY AS NEEDED
     Route: 048
     Dates: start: 20150917, end: 20151016
  9. KEFLEX [Concomitant]
     Active Substance: CEPHALEXIN
     Route: 048
  10. LIDOCAINE. [Concomitant]
     Active Substance: LIDOCAINE
     Dosage: 15 MILLILITER
     Route: 048
  11. POLYETHYLENE GLYCOL [Concomitant]
     Active Substance: POLYETHYLENE GLYCOLS
     Route: 048
     Dates: start: 20141208
  12. VALTREX [Concomitant]
     Active Substance: VALACYCLOVIR HYDROCHLORIDE
     Route: 048
     Dates: start: 20150521
  13. CRESTOR [Suspect]
     Active Substance: ROSUVASTATIN CALCIUM
     Route: 048
  14. LYRICA [Suspect]
     Active Substance: PREGABALIN
     Route: 048
     Dates: start: 20150810
  15. AMLODIPINE [Concomitant]
     Active Substance: AMLODIPINE BESYLATE
     Route: 048
  16. VITAMIN D3 [Concomitant]
     Active Substance: CHOLECALCIFEROL
     Dosage: 4000
     Route: 048
  17. MULTIVITAMIN [Concomitant]
     Active Substance: VITAMINS
     Route: 048
  18. LYRICA [Suspect]
     Active Substance: PREGABALIN
     Route: 048
     Dates: start: 20150323, end: 20150810
  19. KENALOG [Concomitant]
     Active Substance: TRIAMCINOLONE ACETONIDE
  20. CYMBALTA [Concomitant]
     Active Substance: DULOXETINE HYDROCHLORIDE
     Route: 048
  21. PREDNISONE. [Concomitant]
     Active Substance: PREDNISONE
     Route: 048
  22. TRIAMCINOLONE [Concomitant]
     Active Substance: TRIAMCINOLONE
     Dosage: 2 TIMES DISP 85 G TUBE , ACETONIDE 0.1%
     Route: 061
     Dates: start: 20150813
  23. TRIAMCINOLONE [Concomitant]
     Active Substance: TRIAMCINOLONE
     Route: 061
     Dates: start: 20150909
  24. OMEPRAZOLE. [Suspect]
     Active Substance: OMEPRAZOLE
     Route: 048
     Dates: start: 20150225
  25. PROAIR HFA [Concomitant]
     Active Substance: ALBUTEROL SULFATE
     Dosage: 90 INHALE 2 PUFF BY INHALATION MEG/ACTUATION ROUTE EVERY 4 - 6 HOURS AS
     Route: 055
  26. TRIAMCINOLONE ACETONIDE. [Concomitant]
     Active Substance: TRIAMCINOLONE ACETONIDE
     Dosage: EVERY DAY SIMILAR SIZE. APPLY TOPICAL OINTMENT TO VAGINAL OPENING AND AREAS OF VULVAR PAIN
     Route: 061
  27. LYRICA [Suspect]
     Active Substance: PREGABALIN
     Route: 048
     Dates: start: 20150810, end: 20150810
  28. NITROGLYCER [Concomitant]
     Dosage: 0.4 APPLY 1 PATCH DAILY TO SKIN AND FOR 10-12 HOURS AND REMOVE AT NIGHT DAILY
     Route: 061
  29. OXYBUTYNIN [Concomitant]
     Active Substance: OXYBUTYNIN
     Dates: start: 20150909
  30. PREMARIN [Suspect]
     Active Substance: ESTROGENS, CONJUGATED
     Route: 065
  31. PREDNISONE. [Concomitant]
     Active Substance: PREDNISONE
     Route: 048
  32. EMLA [Concomitant]
     Active Substance: LIDOCAINE\PRILOCAINE
     Dosage: EVERY 5 HOURS
     Route: 061
     Dates: start: 20150813

REACTIONS (24)
  - Urinary tract infection [Unknown]
  - Vulvar dysplasia [Unknown]
  - Dry mouth [Unknown]
  - Squamous cell carcinoma of the vulva [Unknown]
  - Metastases to lymph nodes [Unknown]
  - Drug intolerance [Unknown]
  - Malaise [Unknown]
  - Proctalgia [Unknown]
  - Drug hypersensitivity [Unknown]
  - Drug ineffective [Unknown]
  - Vulvovaginal human papilloma virus infection [Unknown]
  - Body height decreased [Unknown]
  - Nausea [Unknown]
  - Arthralgia [Unknown]
  - Vaginal cancer [Unknown]
  - Vulval cancer stage 0 [Unknown]
  - Back pain [Unknown]
  - Decreased appetite [Unknown]
  - Insomnia [Unknown]
  - Vaginal haemorrhage [Unknown]
  - Fatigue [Unknown]
  - Vulvovaginal pain [Unknown]
  - Adverse drug reaction [Unknown]
  - Myalgia [Unknown]

NARRATIVE: CASE EVENT DATE: 20140922
